FAERS Safety Report 8945234 (Version 2)
Quarter: 2014Q2

REPORT INFORMATION
  Report Type: Report from Study
  Country: DE (occurrence: DE)
  Receive Date: 20121205
  Receipt Date: 20140606
  Transmission Date: 20141212
  Serious: Yes (Death, Hospitalization, Other)
  Sender: FDA-Public Use
  Company Number: DE-BAYER-2011-057250

PATIENT
  Sex: Female
  Weight: 75 kg

DRUGS (12)
  1. BLINDED SORAFENIB (RAF KINASE INHIBITOR) [Suspect]
     Indication: OVARIAN CANCER
     Dosage: 800 MG, QD
     Route: 048
     Dates: start: 20110702, end: 20110707
  2. BLINDED SORAFENIB (RAF KINASE INHIBITOR) [Suspect]
     Indication: OVARIAN CANCER
     Dosage: UNK
     Dates: start: 20110712, end: 20110729
  3. BLINDED SORAFENIB (RAF KINASE INHIBITOR) [Suspect]
     Indication: OVARIAN CANCER
     Dosage: 400 MG PER DAY
     Route: 048
     Dates: start: 20110711, end: 20110714
  4. TOPOTECAN [Suspect]
     Indication: OVARIAN CANCER
     Dosage: 1.25 MG DAILY
     Route: 042
     Dates: start: 20110627, end: 20110701
  5. TOPOTECAN [Suspect]
     Indication: OVARIAN CANCER
     Dosage: 1 MG, QD
     Route: 042
     Dates: start: 20110725, end: 20110729
  6. ENALAPRIL [Concomitant]
     Indication: HYPERTENSION
     Dosage: 10 MG, QD
     Route: 048
     Dates: start: 20110703, end: 20110806
  7. FENTANYL [Concomitant]
     Indication: PAIN
     Dosage: 25 MG DAILY
     Route: 042
     Dates: start: 20110801, end: 20110802
  8. VOMEX A [Concomitant]
     Indication: MALAISE
     Dosage: 62 MG, QD
     Route: 042
     Dates: start: 20110703, end: 20110705
  9. NUTRIFLEX [Concomitant]
  10. MORPHIN [Concomitant]
     Indication: PAIN
     Dosage: 100 MG, DAILY
     Route: 042
     Dates: start: 20110803, end: 20110806
  11. SUFENTA [Concomitant]
     Dosage: 250 ?G, DAILY
     Route: 042
     Dates: start: 20110803, end: 20110803
  12. CLEXANE [Concomitant]
     Indication: PROPHYLAXIS
     Dosage: 0.2 ML, QD
     Route: 042
     Dates: start: 20110703, end: 20110706

REACTIONS (8)
  - Neutropenic sepsis [Fatal]
  - Neutropenia [Not Recovered/Not Resolved]
  - Thrombocytopenia [Recovered/Resolved]
  - Vomiting [Not Recovered/Not Resolved]
  - Nausea [Not Recovered/Not Resolved]
  - Subileus [Not Recovered/Not Resolved]
  - Vomiting [Not Recovered/Not Resolved]
  - Septic shock [Fatal]
